FAERS Safety Report 8472067-5 (Version None)
Quarter: 2012Q2

REPORT INFORMATION
  Report Type: 
  Country: None (occurrence: None)
  Receive Date: 20120323
  Receipt Date: 20111027
  Transmission Date: 20120825
  Serious: Yes (Other)
  Sender: FDA-Public Use
  Company Number: 163-21880-11100802

PATIENT
  Age: 76 Year
  Sex: Male

DRUGS (1)
  1. REVLIMID [Suspect]
     Indication: AMYLOIDOSIS
     Dosage: 10 MG, DAILY FOR 21 DAYS , PO
     Route: 048
     Dates: start: 20110816, end: 20111027

REACTIONS (18)
  - HEADACHE [None]
  - DIARRHOEA [None]
  - NAUSEA [None]
  - DISEASE PROGRESSION [None]
  - COUGH [None]
  - SINUSITIS [None]
  - URINARY TRACT INFECTION [None]
  - ASTHENIA [None]
  - RECTAL HAEMORRHAGE [None]
  - HAEMATURIA [None]
  - HYPERHIDROSIS [None]
  - MELAENA [None]
  - AMYLOIDOSIS [None]
  - CHEST PAIN [None]
  - DYSPNOEA [None]
  - DECREASED APPETITE [None]
  - DYSURIA [None]
  - WEIGHT DECREASED [None]
